FAERS Safety Report 15964180 (Version 1)
Quarter: 2019Q1

REPORT INFORMATION
  Report Type: Spontaneous
  Country: FR (occurrence: FR)
  Receive Date: 20190214
  Receipt Date: 20190214
  Transmission Date: 20190417
  Serious: Yes (Hospitalization)
  Sender: FDA-Public Use
  Company Number: FR-009507513-1902FRA002482

PATIENT
  Age: 41 Year
  Sex: Female

DRUGS (8)
  1. LAROXYL [Suspect]
     Active Substance: AMITRIPTYLINE HYDROCHLORIDE
     Route: 048
  2. TRAMADOL HYDROCHLORIDE. [Suspect]
     Active Substance: TRAMADOL HYDROCHLORIDE
     Route: 048
  3. MIRTAZAPINE. [Suspect]
     Active Substance: MIRTAZAPINE
     Route: 048
  4. BUPRENORPHINE. [Suspect]
     Active Substance: BUPRENORPHINE
     Route: 045
  5. STILNOX [Suspect]
     Active Substance: ZOLPIDEM TARTRATE
     Route: 048
  6. VALIUM [Suspect]
     Active Substance: DIAZEPAM
     Route: 048
  7. LEXOMIL [Suspect]
     Active Substance: BROMAZEPAM
     Route: 048
  8. THERALENE [Suspect]
     Active Substance: TRIMEPRAZINE
     Route: 048

REACTIONS (2)
  - Overdose [Unknown]
  - Off label use [Unknown]
